FAERS Safety Report 14610097 (Version 4)
Quarter: 2019Q1

REPORT INFORMATION
  Report Type: Spontaneous
  Country: US (occurrence: US)
  Receive Date: 20180307
  Receipt Date: 20190116
  Transmission Date: 20190417
  Serious: No
  Sender: FDA-Public Use
  Company Number: US-PFIZER INC-2018091901

PATIENT
  Age: 18 Year
  Sex: Female

DRUGS (5)
  1. GENOTROPIN MQ [Suspect]
     Active Substance: SOMATROPIN
     Indication: HORMONE THERAPY
  2. GENOTROPIN MQ [Suspect]
     Active Substance: SOMATROPIN
     Indication: BLOOD GROWTH HORMONE
     Dosage: 1.0 MG, DAILY
  3. GENOTROPIN MQ [Suspect]
     Active Substance: SOMATROPIN
     Indication: ADRENAL INSUFFICIENCY
  4. GENOTROPIN MQ [Suspect]
     Active Substance: SOMATROPIN
     Indication: ARNOLD-CHIARI MALFORMATION
  5. GENOTROPIN MQ [Suspect]
     Active Substance: SOMATROPIN
     Indication: CONGENITAL HYPOTHYROIDISM

REACTIONS (4)
  - Intentional product misuse [Unknown]
  - Headache [Unknown]
  - Product dose omission [Unknown]
  - Treatment noncompliance [Unknown]
